FAERS Safety Report 10523454 (Version 2)
Quarter: 2014Q4

REPORT INFORMATION
  Report Type: Spontaneous
  Country: US (occurrence: US)
  Receive Date: 20141017
  Receipt Date: 20141022
  Transmission Date: 20150528
  Serious: Yes (Hospitalization, Other)
  Sender: FDA-Public Use
  Company Number: US-AMGEN-USASP2014078330

PATIENT
  Age: 87 Year
  Sex: Female

DRUGS (3)
  1. CRANBERRY                          /01512301/ [Concomitant]
     Dosage: UNK
  2. PROLIA [Suspect]
     Active Substance: DENOSUMAB
     Indication: OSTEOPOROSIS
     Dosage: UNK
     Route: 065
     Dates: start: 20140603
  3. HYDROCODONE [Concomitant]
     Active Substance: HYDROCODONE
     Dosage: UNK

REACTIONS (8)
  - Sjogren^s syndrome [Unknown]
  - Mobility decreased [Unknown]
  - Drug interaction [Unknown]
  - Rectal discharge [Unknown]
  - Fibromyalgia [Recovering/Resolving]
  - Diarrhoea [Unknown]
  - Productive cough [Unknown]
  - Depression [Unknown]

NARRATIVE: CASE EVENT DATE: 20141008
